FAERS Safety Report 5882250-0 (Version None)
Quarter: 2008Q3

REPORT INFORMATION
  Report Type: 
  Country: None (occurrence: None)
  Receive Date: 20080912
  Receipt Date: 20080812
  Transmission Date: 20090109
  Serious: No
  Sender: FDA-Public Use
  Company Number: US-ABBOTT-08P-163-0467800-00

PATIENT
  Sex: Female
  Weight: 66.284 kg

DRUGS (5)
  1. HUMIRA [Suspect]
     Indication: PSORIASIS
     Route: 058
     Dates: start: 20080701
  2. ROSUVASTATIN [Concomitant]
     Indication: BLOOD CHOLESTEROL
  3. CORTISONE CREAM [Concomitant]
     Indication: PSORIASIS
  4. TRIAMCINOLONE CREAM AND OINTMENT [Concomitant]
     Indication: PSORIASIS
     Dosage: MIXED TOGETHER AND RUB ON BODY
  5. ALPRAZOLAM [Concomitant]
     Indication: ANXIETY
     Route: 048
     Dates: start: 20080701

REACTIONS (5)
  - JOINT SWELLING [None]
  - OEDEMA PERIPHERAL [None]
  - ORAL FUNGAL INFECTION [None]
  - OROPHARYNGEAL PAIN [None]
  - WEIGHT INCREASED [None]
